FAERS Safety Report 4870421-1 (Version None)
Quarter: 2006Q1

REPORT INFORMATION
  Report Type: 
  Country: None (occurrence: None)
  Receive Date: 20060103
  Receipt Date: 20050114
  Transmission Date: 20060701
  Serious: No
  Sender: FDA-Public Use
  Company Number: US-BRISTOL-MYERS SQUIBB COMPANY-12826905

PATIENT
  Age: 41 Year
  Sex: Female

DRUGS (5)
  1. TRAZODONE HCL [Suspect]
     Indication: INSOMNIA
     Dosage: NIGHTLY
     Route: 048
     Dates: start: 20031201
  2. PERCOCET [Suspect]
  3. LAMICTAL [Concomitant]
  4. XANAX [Concomitant]
  5. OXYCONTIN [Concomitant]

REACTIONS (1)
  - PREGNANCY [None]
